FAERS Safety Report 8374425-6 (Version None)
Quarter: 2012Q2

REPORT INFORMATION
  Report Type: 
  Country: None (occurrence: None)
  Receive Date: 20120521
  Receipt Date: 20120515
  Transmission Date: 20120825
  Serious: Yes (Other)
  Sender: FDA-Public Use
  Company Number: US-PURDUE-USA-2012-0087301

PATIENT
  Sex: Female

DRUGS (1)
  1. OXYCONTIN [Suspect]
     Indication: PAIN
     Dosage: UNK
     Route: 048
     Dates: start: 20110801

REACTIONS (9)
  - CROHN'S DISEASE [None]
  - FEMALE GENITAL TRACT FISTULA [None]
  - HALLUCINATION [None]
  - UNEVALUABLE EVENT [None]
  - ALCOHOLISM [None]
  - DRUG ABUSE [None]
  - DYSPNOEA [None]
  - ABNORMAL SLEEP-RELATED EVENT [None]
  - REPETITIVE SPEECH [None]
